FAERS Safety Report 5122460-3 (Version None)
Quarter: 2006Q4

REPORT INFORMATION
  Report Type: 
  Country: None (occurrence: None)
  Receive Date: 20061004
  Receipt Date: 20060919
  Transmission Date: 20070319
  Serious: Yes (Hospitalization, Other)
  Sender: FDA-Public Use
  Company Number: CIP06002147

PATIENT
  Age: 59 Year
  Sex: Female

DRUGS (6)
  1. ASACOL [Suspect]
     Indication: COLITIS ULCERATIVE
     Dosage: 800 MG TWICE DAILY, ORAL
     Route: 048
     Dates: start: 20040101
  2. PREDNISONE TAB [Suspect]
     Indication: PAIN
     Dosage: 15 MG DAILY TAPERED, ORAL; 8 MG, DAILY; 2 MG DAILY, ORAL; 4 MG DAILY, ORAL
     Route: 048
     Dates: start: 20060101
  3. PREDNISONE TAB [Suspect]
     Indication: PAIN
     Dosage: 15 MG DAILY TAPERED, ORAL; 8 MG, DAILY; 2 MG DAILY, ORAL; 4 MG DAILY, ORAL
     Route: 048
     Dates: start: 20060201
  4. MERCAPTOPURINE [Suspect]
     Indication: PAIN
     Dosage: ORAL
     Route: 048
  5. COZAAR [Concomitant]
  6. VITAMINS [Concomitant]

REACTIONS (5)
  - CATARACT [None]
  - MALAISE [None]
  - PANCREATITIS [None]
  - POLYMYALGIA RHEUMATICA [None]
  - WEIGHT INCREASED [None]
